FAERS Safety Report 11081649 (Version 1)
Quarter: 2015Q2

REPORT INFORMATION
  Report Type: Report from Study
  Country: AU (occurrence: AU)
  Receive Date: 20150501
  Receipt Date: 20150501
  Transmission Date: 20150821
  Serious: Yes (Other)
  Sender: FDA-Public Use
  Company Number: PHHY2015AU031476

PATIENT
  Age: 35 Year
  Sex: Male
  Weight: 66 kg

DRUGS (10)
  1. CLOZARIL [Suspect]
     Active Substance: CLOZAPINE
     Dosage: 350 MG, UNK
     Route: 048
     Dates: start: 20020602
  2. THIAMINE [Concomitant]
     Active Substance: THIAMINE
     Indication: VITAMIN B1 DEFICIENCY
     Dosage: 1 DF, UNK
     Route: 048
  3. CLOZARIL [Suspect]
     Active Substance: CLOZAPINE
     Dosage: 200 MG, (DOSE REDUCED)
     Route: 048
     Dates: start: 20150305
  4. SERETIDE [Concomitant]
     Active Substance: FLUTICASONE FUROATE\SALMETEROL XINAFOATE
     Indication: ASTHMA
     Dosage: 1 DF, UNK
     Route: 055
  5. CLOZARIL [Suspect]
     Active Substance: CLOZAPINE
     Indication: SCHIZOPHRENIA
     Dosage: 300 MG, QD
     Route: 048
     Dates: start: 20000602
  6. CLOZARIL [Suspect]
     Active Substance: CLOZAPINE
     Dosage: 300 MG, UNK
     Route: 048
     Dates: start: 20150224
  7. VENLAFAXINE [Concomitant]
     Active Substance: VENLAFAXINE HYDROCHLORIDE
     Indication: DEPRESSION
     Dosage: 150 MG, UNK
     Route: 048
  8. VENTOLIN [Concomitant]
     Active Substance: ALBUTEROL SULFATE
     Indication: ASTHMA
     Route: 055
  9. CLOZARIL [Suspect]
     Active Substance: CLOZAPINE
     Dosage: 350 UNK, UNK
     Route: 048
     Dates: start: 20141222
  10. CHAMPIX (VARENICLINE) [Concomitant]
     Indication: PRODUCT USED FOR UNKNOWN INDICATION
     Dosage: 1 MG, BID
     Route: 065

REACTIONS (30)
  - Muscle contractions involuntary [Recovering/Resolving]
  - Blood albumin decreased [Recovered/Resolved]
  - Blood creatinine decreased [Recovered/Resolved]
  - Dysphagia [Unknown]
  - Heart rate increased [Unknown]
  - Blood pressure increased [Unknown]
  - Oxygen saturation increased [Unknown]
  - Blood sodium increased [Unknown]
  - Erythema [Unknown]
  - Salivary hypersecretion [Recovering/Resolving]
  - Anxiety [Unknown]
  - Gamma-glutamyltransferase increased [Unknown]
  - Blood pH decreased [Unknown]
  - Blood alkaline phosphatase increased [Recovered/Resolved]
  - Constipation [Recovering/Resolving]
  - Aspartate aminotransferase increased [Unknown]
  - C-reactive protein increased [Recovered/Resolved]
  - PCO2 increased [Unknown]
  - PO2 increased [Unknown]
  - Base excess increased [Unknown]
  - Panic attack [Unknown]
  - Red blood cell count decreased [Not Recovered/Not Resolved]
  - Dysphemia [Recovering/Resolving]
  - Antipsychotic drug level increased [Recovered/Resolved]
  - Aneurysm [Unknown]
  - Tic [Recovering/Resolving]
  - Blood creatinine decreased [Recovered/Resolved]
  - Calcium ionised decreased [Unknown]
  - Blood phosphorus increased [Unknown]
  - Flushing [Unknown]

NARRATIVE: CASE EVENT DATE: 20100305
